FAERS Safety Report 12154307 (Version 1)
Quarter: 2016Q1

REPORT INFORMATION
  Report Type: Spontaneous
  Country: US (occurrence: US)
  Receive Date: 20160307
  Receipt Date: 20160307
  Transmission Date: 20160526
  Serious: Yes (Hospitalization)
  Sender: FDA-Public Use
  Company Number: US-ROCHE-1717848

PATIENT
  Age: 35 Year
  Sex: Male
  Weight: 73.94 kg

DRUGS (12)
  1. DEPAKOTE [Concomitant]
     Active Substance: DIVALPROEX SODIUM
     Dosage: 250MG PILL THREE TIMES DAILY AND 500MG PILLS TWICE DAILY
     Route: 065
     Dates: start: 201310, end: 201403
  2. DALMANE [Suspect]
     Active Substance: FLURAZEPAM HYDROCHLORIDE
     Indication: SEDATION
     Dosage: 10 MG OR 15 MG
     Route: 065
     Dates: start: 201303, end: 201308
  3. GEODON [Suspect]
     Active Substance: ZIPRASIDONE HYDROCHLORIDE\ZIPRASIDONE MESYLATE
     Indication: PRODUCT USED FOR UNKNOWN INDICATION
     Route: 065
     Dates: start: 201308, end: 2015
  4. LOXAPINE. [Concomitant]
     Active Substance: LOXAPINE
     Route: 065
     Dates: start: 201209
  5. TRILEPTAL [Concomitant]
     Active Substance: OXCARBAZEPINE
     Route: 065
     Dates: start: 200607
  6. RISPERIDONE. [Concomitant]
     Active Substance: RISPERIDONE
     Dosage: THIS WENT FROM 3MG, TO 6MG, THEN BACK TO 3MG, THEN UP TO 4MG. IT ALSO WENT?FROM ONE A DAY TO TWICE A
     Route: 065
     Dates: start: 201401, end: 201501
  7. KLONOPIN [Suspect]
     Active Substance: CLONAZEPAM
     Route: 065
     Dates: start: 201501
  8. ILOPERIDONE [Suspect]
     Active Substance: ILOPERIDONE
     Indication: PRODUCT USED FOR UNKNOWN INDICATION
     Route: 065
  9. CARBAMAZEPINE. [Concomitant]
     Active Substance: CARBAMAZEPINE
     Route: 065
     Dates: start: 201307, end: 201308
  10. KLONOPIN [Suspect]
     Active Substance: CLONAZEPAM
     Indication: PRODUCT USED FOR UNKNOWN INDICATION
     Route: 065
  11. GABAPENTIN. [Suspect]
     Active Substance: GABAPENTIN
     Indication: PRODUCT USED FOR UNKNOWN INDICATION
     Route: 065
     Dates: start: 201310, end: 201311
  12. LATUDA [Suspect]
     Active Substance: LURASIDONE HYDROCHLORIDE
     Indication: PRODUCT USED FOR UNKNOWN INDICATION
     Route: 065
     Dates: start: 201312, end: 201401

REACTIONS (8)
  - Feeling abnormal [Unknown]
  - Drug ineffective [Unknown]
  - Mania [Recovered/Resolved]
  - Increased appetite [Unknown]
  - Weight decreased [Unknown]
  - Withdrawal syndrome [Unknown]
  - Aggression [Recovered/Resolved]
  - Somnolence [Recovered/Resolved]

NARRATIVE: CASE EVENT DATE: 201308
